FAERS Safety Report 7745937-0 (Version None)
Quarter: 2011Q3

REPORT INFORMATION
  Report Type: 
  Country: None (occurrence: None)
  Receive Date: 20110913
  Receipt Date: 20110909
  Transmission Date: 20111222
  Serious: No
  Sender: FDA-Public Use
  Company Number: US-PFIZER INC-2011212840

PATIENT
  Sex: Male
  Weight: 97.5 kg

DRUGS (3)
  1. NARDIL [Suspect]
     Indication: DEPRESSION
     Dosage: 15 MG, 2X/DAY
     Route: 048
     Dates: start: 19851001
  2. LISINOPRIL [Concomitant]
     Indication: BLOOD PRESSURE ABNORMAL
     Dosage: 10 MG, 1X/DAY
  3. NARDIL [Suspect]
     Indication: ANXIETY

REACTIONS (4)
  - PAROSMIA [None]
  - NAUSEA [None]
  - DRUG EFFECT DECREASED [None]
  - HEADACHE [None]
